FAERS Safety Report 6328371-X (Version None)
Quarter: 2009Q3

REPORT INFORMATION
  Report Type: 
  Country: None (occurrence: None)
  Receive Date: 20090825
  Receipt Date: 20090504
  Transmission Date: 20100115
  Serious: No
  Sender: FDA-Public Use
  Company Number: US-ABBOTT-09P-163-0571473-00

PATIENT
  Sex: Female
  Weight: 103.06 kg

DRUGS (2)
  1. SYNTHROID [Suspect]
     Indication: HYPOTHYROIDISM
     Dates: start: 19890101
  2. SEVERAL UNKNOWN VITAMINS [Concomitant]
     Indication: DRUG USE FOR UNKNOWN INDICATION

REACTIONS (5)
  - ABNORMAL SENSATION IN EYE [None]
  - FATIGUE [None]
  - OROPHARYNGEAL DISCOMFORT [None]
  - PALPITATIONS [None]
  - POOR QUALITY SLEEP [None]
